FAERS Safety Report 6553019-9 (Version None)
Quarter: 2010Q1

REPORT INFORMATION
  Report Type: 
  Country: None (occurrence: None)
  Receive Date: 20100122
  Receipt Date: 20090909
  Transmission Date: 20100710
  Serious: Yes (Other)
  Sender: FDA-Public Use
  Company Number: ADE# 09-114

PATIENT
  Age: 38 Year
  Sex: Male

DRUGS (6)
  1. PHENYTOIN SODIUM [Suspect]
     Dosage: 1 CAPSULE EVERY 8 HOURS
  2. COMPAZINE [Concomitant]
  3. DECADRON [Concomitant]
  4. PAXIL [Concomitant]
  5. KLONOPIN [Concomitant]
  6. PERCOCET [Concomitant]

REACTIONS (1)
  - ANTICONVULSANT DRUG LEVEL BELOW THERAPEUTIC [None]
